FAERS Safety Report 13259271 (Version 2)
Quarter: 2017Q1

REPORT INFORMATION
  Report Type: Spontaneous
  Country: US (occurrence: US)
  Receive Date: 20170222
  Receipt Date: 20170306
  Transmission Date: 20170428
  Serious: No
  Sender: FDA-Public Use
  Company Number: US-PFIZER INC-2017070725

PATIENT
  Sex: Male

DRUGS (1)
  1. XELJANZ [Suspect]
     Active Substance: TOFACITINIB CITRATE
     Indication: POLYARTHRITIS
     Dosage: 5 MG, DAILY

REACTIONS (20)
  - Neck pain [Unknown]
  - Depression [Unknown]
  - Hair colour changes [Unknown]
  - Sleep disorder [Unknown]
  - Joint swelling [Unknown]
  - Dry skin [Unknown]
  - Fatigue [Unknown]
  - Dry eye [Unknown]
  - Anxiety [Unknown]
  - Product use issue [Unknown]
  - Peripheral swelling [Unknown]
  - Pollakiuria [Unknown]
  - Headache [Unknown]
  - Memory impairment [Unknown]
  - Asthenia [Unknown]
  - Ocular hyperaemia [Unknown]
  - Photosensitivity reaction [Unknown]
  - Swelling [Unknown]
  - Musculoskeletal stiffness [Recovering/Resolving]
  - Arthralgia [Recovering/Resolving]
